FAERS Safety Report 20606553 (Version 2)
Quarter: 2022Q2

REPORT INFORMATION
  Report Type: Spontaneous
  Country: IN (occurrence: IN)
  Receive Date: 20220317
  Receipt Date: 20220602
  Transmission Date: 20220721
  Serious: Yes (Death, Hospitalization)
  Sender: FDA-Public Use
  Company Number: IN-PFIZER INC-202200379296

PATIENT
  Age: 47 Year
  Sex: Male

DRUGS (2)
  1. SUTENT [Suspect]
     Active Substance: SUNITINIB MALATE
     Dosage: UNK
     Dates: end: 20220204
  2. SUTENT [Suspect]
     Active Substance: SUNITINIB MALATE
     Dosage: UNK
     Dates: end: 20220416

REACTIONS (4)
  - Death [Fatal]
  - Malaise [Unknown]
  - Heart rate increased [Unknown]
  - Vomiting [Unknown]
